FAERS Safety Report 5663162-4 (Version None)
Quarter: 2008Q1

REPORT INFORMATION
  Report Type: 
  Country: None (occurrence: None)
  Receive Date: 20080310
  Receipt Date: 20080225
  Transmission Date: 20080703
  Serious: Yes (Hospitalization)
  Sender: FDA-Public Use
  Company Number: DSJ-2008-02137

PATIENT
  Age: 85 Year
  Sex: Female

DRUGS (5)
  1. OLMESARTAN MEDOXOMIL [Suspect]
     Dosage: PER ORAL
     Route: 048
     Dates: start: 20071201, end: 20071201
  2. LASIX [Concomitant]
  3. ACETYLSALICYLIC ACID SRT [Concomitant]
  4. DOXAZOSIN MESYLATE [Concomitant]
  5. NORVASC [Concomitant]

REACTIONS (1)
  - GENERALISED OEDEMA [None]
